FAERS Safety Report 19769541 (Version 1)
Quarter: 2021Q3

REPORT INFORMATION
  Report Type: Spontaneous
  Country: FR (occurrence: FR)
  Receive Date: 20210831
  Receipt Date: 20210831
  Transmission Date: 20211014
  Serious: No
  Sender: FDA-Public Use
  Company Number: FR-PFIZER INC-2021639875

PATIENT
  Sex: Male

DRUGS (1)
  1. SOMAVERT [Suspect]
     Active Substance: PEGVISOMANT
     Dosage: UNK
     Route: 058
     Dates: start: 2017

REACTIONS (3)
  - Injury associated with device [Unknown]
  - Device connection issue [Unknown]
  - Injection site pain [Unknown]
